FAERS Safety Report 10307042 (Version 8)
Quarter: 2015Q2

REPORT INFORMATION
  Report Type: Spontaneous
  Country: FR (occurrence: FR)
  Receive Date: 20140716
  Receipt Date: 20150602
  Transmission Date: 20150821
  Serious: Yes (Hospitalization, Other)
  Sender: FDA-Public Use
  Company Number: FR-GILEAD-2014-0108767

PATIENT
  Age: 40 Year
  Sex: Female
  Weight: 58 kg

DRUGS (3)
  1. DACLATASVIR [Suspect]
     Active Substance: DACLATASVIR
     Indication: HEPATITIS C
     Dosage: 60 MG, QD
     Route: 048
     Dates: start: 20140521, end: 201408
  2. SOVALDI [Suspect]
     Active Substance: SOFOSBUVIR
     Indication: HEPATITIS C
     Dosage: 400 MG, QD
     Route: 048
     Dates: start: 20140521, end: 201408
  3. METFORMINE [Concomitant]
     Active Substance: METFORMIN HYDROCHLORIDE
     Indication: DIABETES MELLITUS

REACTIONS (10)
  - Nephrotic syndrome [Not Recovered/Not Resolved]
  - Vaginal discharge [Unknown]
  - Helicobacter infection [Unknown]
  - Chromaturia [Unknown]
  - Renal failure [Not Recovered/Not Resolved]
  - Anaemia [Recovered/Resolved]
  - Colon dysplasia [Unknown]
  - Diabetic retinopathy [Unknown]
  - Abdominal pain [Unknown]
  - Retinopathy hypertensive [Unknown]

NARRATIVE: CASE EVENT DATE: 20140610
